FAERS Safety Report 12922524 (Version 2)
Quarter: 2016Q4

REPORT INFORMATION
  Report Type: Spontaneous
  Country: GB (occurrence: GB)
  Receive Date: 20161109
  Receipt Date: 20161205
  Transmission Date: 20170207
  Serious: Yes (Hospitalization)
  Sender: FDA-Public Use
  Company Number: GB-JNJFOC-20161100797

PATIENT
  Age: 48 Year
  Sex: Female

DRUGS (5)
  1. NORETHISTERONE [Concomitant]
     Active Substance: NORETHINDRONE
     Indication: PRODUCT USED FOR UNKNOWN INDICATION
     Dosage: DOSE: 5 (UNITS UNSPECIFIED)
     Route: 065
  2. IBUPROFEN. [Suspect]
     Active Substance: IBUPROFEN
     Indication: TRIGEMINAL NEURALGIA
     Route: 065
     Dates: end: 20161009
  3. CARBAMAZEPINE. [Suspect]
     Active Substance: CARBAMAZEPINE
     Indication: TRIGEMINAL NEURALGIA
     Dosage: DOSE: 200 (UNITS UNSPECIFIED)
     Route: 065
     Dates: start: 20160916, end: 20161005
  4. TRIMETHOPRIM. [Concomitant]
     Active Substance: TRIMETHOPRIM
     Indication: PRODUCT USED FOR UNKNOWN INDICATION
     Dosage: DOSE: 200 (UNITS UNSPECIFIED)
     Route: 065
  5. IBUPROFEN. [Suspect]
     Active Substance: IBUPROFEN
     Route: 065

REACTIONS (18)
  - Swelling face [Recovering/Resolving]
  - Lip swelling [Recovering/Resolving]
  - Drug hypersensitivity [Unknown]
  - Pruritus [Recovering/Resolving]
  - Skin lesion [Not Recovered/Not Resolved]
  - Pyrexia [Recovering/Resolving]
  - Mouth ulceration [Recovering/Resolving]
  - Pruritus genital [Recovering/Resolving]
  - Genital burning sensation [Recovering/Resolving]
  - Erythema multiforme [Not Recovered/Not Resolved]
  - Lip ulceration [Recovering/Resolving]
  - Lip exfoliation [Recovering/Resolving]
  - Oral pain [Not Recovered/Not Resolved]
  - Oropharyngeal pain [Recovering/Resolving]
  - Petechiae [Not Recovered/Not Resolved]
  - Stevens-Johnson syndrome [Recovering/Resolving]
  - Dysphagia [Recovering/Resolving]
  - Vaginal ulceration [Recovering/Resolving]

NARRATIVE: CASE EVENT DATE: 2016
